FAERS Safety Report 7458285-3 (Version None)
Quarter: 2011Q2

REPORT INFORMATION
  Report Type: 
  Country: None (occurrence: None)
  Receive Date: 20110504
  Receipt Date: 20110429
  Transmission Date: 20111010
  Serious: Yes (Other)
  Sender: FDA-Public Use
  Company Number: JP-MERCK-1009USA00680

PATIENT
  Age: 78 Year
  Sex: Female
  Weight: 68 kg

DRUGS (6)
  1. GLUFAST [Concomitant]
     Route: 048
     Dates: end: 20100730
  2. NOVORAPID [Concomitant]
     Route: 058
     Dates: start: 20100730, end: 20100804
  3. LIVALO [Concomitant]
     Indication: DYSLIPIDAEMIA
     Route: 048
     Dates: end: 20100730
  4. JANUVIA [Suspect]
     Indication: TYPE 2 DIABETES MELLITUS
     Route: 048
     Dates: start: 20100805, end: 20100809
  5. ACTOS [Concomitant]
     Route: 048
     Dates: start: 20080101, end: 20100730
  6. SEIBULE [Concomitant]
     Route: 048
     Dates: end: 20100730

REACTIONS (2)
  - PYREXIA [None]
  - JOINT SWELLING [None]
